FAERS Safety Report 13965419 (Version 1)
Quarter: 2017Q3

REPORT INFORMATION
  Report Type: Spontaneous
  Country: US (occurrence: US)
  Receive Date: 20170913
  Receipt Date: 20170913
  Transmission Date: 20171128
  Serious: Yes (Other)
  Sender: FDA-Public Use
  Company Number: US-UCBSA-2017036351

PATIENT
  Age: 20 Year
  Sex: Female

DRUGS (1)
  1. LACOSAMIDE. [Suspect]
     Active Substance: LACOSAMIDE
     Indication: EPILEPSY
     Dosage: 100 MG, UNKNOWN AMOUNT

REACTIONS (6)
  - Pneumonia [Recovered/Resolved]
  - Hypotension [Unknown]
  - Tachycardia [Unknown]
  - Cardiac arrest [Unknown]
  - Status epilepticus [Unknown]
  - Rhabdomyolysis [Recovered/Resolved]
